FAERS Safety Report 6730585-1 (Version None)
Quarter: 2010Q2

REPORT INFORMATION
  Report Type: 
  Country: None (occurrence: None)
  Receive Date: 20100518
  Receipt Date: 20100507
  Transmission Date: 20101027
  Serious: Yes (Other)
  Sender: FDA-Public Use
  Company Number: US-JNJFOC-20100200810

PATIENT
  Sex: Female
  Weight: 84.82 kg

DRUGS (7)
  1. REMICADE [Suspect]
     Indication: RHEUMATOID ARTHRITIS
     Route: 042
  2. REMICADE [Suspect]
     Route: 042
  3. REMICADE [Suspect]
     Route: 042
  4. HYDROCHLOROTHIAZIDE [Suspect]
     Indication: DRUG USE FOR UNKNOWN INDICATION
  5. METHOTREXATE [Concomitant]
     Indication: RHEUMATOID ARTHRITIS
  6. NORVASC [Concomitant]
  7. ATENOLOL [Concomitant]

REACTIONS (2)
  - ARRHYTHMIA [None]
  - HYPOKALAEMIA [None]
